FAERS Safety Report 7266629-0 (Version None)
Quarter: 2011Q1

REPORT INFORMATION
  Report Type: 
  Country: None (occurrence: None)
  Receive Date: 20110131
  Receipt Date: 20110118
  Transmission Date: 20110831
  Serious: Yes (Other)
  Sender: FDA-Public Use
  Company Number: US-ELI_LILLY_AND_COMPANY-US200909001584

PATIENT
  Sex: Male

DRUGS (11)
  1. LIPITOR [Concomitant]
     Dosage: UNK, UNKNOWN
     Route: 065
  2. METRONIDAZOLE [Concomitant]
     Dosage: UNK, UNKNOWN
     Route: 065
  3. MULTIVITAMINS PLUS IRON [Concomitant]
     Dosage: UNK, UNKNOWN
     Route: 065
  4. OMEPRAZOLE [Concomitant]
     Dosage: UNK, UNKNOWN
     Route: 065
  5. LIALDA [Concomitant]
     Dosage: UNK, UNKNOWN
     Route: 065
  6. DIAZEPAM [Concomitant]
     Dosage: UNK, UNKNOWN
     Route: 065
  7. FISH OIL [Concomitant]
     Dosage: UNK, UNKNOWN
     Route: 065
  8. PREDNISONE [Concomitant]
     Dosage: UNK, UNKNOWN
     Route: 065
  9. ASPIRIN [Concomitant]
     Dosage: UNK, UNKNOWN
     Route: 065
  10. ALTACE [Concomitant]
     Dosage: UNK, UNKNOWN
     Route: 065
  11. FORTEO [Suspect]
     Indication: OSTEOPOROSIS
     Dosage: 20 UG, DAILY (1/D)
     Dates: start: 20090701, end: 20101209

REACTIONS (3)
  - VITREOUS FLOATERS [None]
  - ARTHRALGIA [None]
  - EYE NAEVUS [None]
